FAERS Safety Report 7244676-2 (Version None)
Quarter: 2011Q1

REPORT INFORMATION
  Report Type: 
  Country: None (occurrence: None)
  Receive Date: 20110125
  Receipt Date: 20101221
  Transmission Date: 20110831
  Serious: No
  Sender: FDA-Public Use
  Company Number: US-MYLANLABS-2010S1023636

PATIENT
  Age: 82 Year
  Sex: Male

DRUGS (7)
  1. ZOLOFT [Concomitant]
  2. CLONIDINE [Suspect]
     Indication: BLOOD PRESSURE INCREASED
     Route: 062
     Dates: start: 20100901
  3. ASPIRIN [Concomitant]
  4. FISH OIL [Concomitant]
  5. COREG [Concomitant]
  6. POTASSIUM [Concomitant]
  7. PLAVIX [Concomitant]

REACTIONS (1)
  - APPLICATION SITE IRRITATION [None]
